FAERS Safety Report 13589946 (Version 5)
Quarter: 2017Q3

REPORT INFORMATION
  Report Type: Report from Study
  Country: US (occurrence: US)
  Receive Date: 20170529
  Receipt Date: 20170815
  Transmission Date: 20171127
  Serious: Yes (Death, Hospitalization, Other)
  Sender: FDA-Public Use
  Company Number: US-GILEAD-2017-0274862

PATIENT
  Age: 81 Year
  Sex: Female

DRUGS (2)
  1. AMBRISENTAN [Suspect]
     Active Substance: AMBRISENTAN
     Indication: PRODUCT USED FOR UNKNOWN INDICATION
     Dosage: 5 MG, UNK
     Route: 065
     Dates: start: 20170504
  2. AMBRISENTAN [Suspect]
     Active Substance: AMBRISENTAN
     Dosage: 10 MG, QD
     Route: 065

REACTIONS (6)
  - Wheelchair user [Unknown]
  - Hypertension [Unknown]
  - Urinary tract infection [Unknown]
  - Lung infection [Not Recovered/Not Resolved]
  - Cerebrovascular accident [Unknown]
  - Death [Fatal]

NARRATIVE: CASE EVENT DATE: 201705
